FAERS Safety Report 22857868 (Version 4)
Quarter: 2023Q4

REPORT INFORMATION
  Report Type: Spontaneous
  Country: US (occurrence: US)
  Receive Date: 20230823
  Receipt Date: 20231108
  Transmission Date: 20240110
  Serious: Yes (Other)
  Sender: FDA-Public Use
  Company Number: US-LUNDBECK-DKLU3066463

PATIENT
  Age: 76 Year
  Sex: Female

DRUGS (3)
  1. VYEPTI [Suspect]
     Active Substance: EPTINEZUMAB-JJMR
     Indication: Migraine
     Route: 041
     Dates: start: 20230721
  2. NURTEC ODT [Concomitant]
     Active Substance: RIMEGEPANT SULFATE
     Indication: Migraine prophylaxis
     Route: 065
  3. RIZATRIPTAN [Concomitant]
     Active Substance: RIZATRIPTAN
     Indication: Migraine prophylaxis
     Route: 065

REACTIONS (4)
  - Wrist surgery [Unknown]
  - Limb operation [Unknown]
  - Drug ineffective [Recovered/Resolved]
  - Therapeutic response delayed [Unknown]

NARRATIVE: CASE EVENT DATE: 20230701
